FAERS Safety Report 5532485-1 (Version None)
Quarter: 2007Q4

REPORT INFORMATION
  Report Type: 
  Country: None (occurrence: None)
  Receive Date: 20071203
  Receipt Date: 20071121
  Transmission Date: 20080405
  Serious: Yes (Other)
  Sender: FDA-Public Use
  Company Number: FR-PFIZER INC-2007098663

PATIENT
  Age: 50 Year
  Sex: Female

DRUGS (4)
  1. NEURONTIN [Suspect]
     Dates: start: 20030101, end: 20070501
  2. KEPPRA [Concomitant]
  3. LYSANXIA [Concomitant]
  4. PROZAC [Concomitant]

REACTIONS (2)
  - DEPRESSION [None]
  - UNEVALUABLE EVENT [None]
